FAERS Safety Report 19431729 (Version 3)
Quarter: 2021Q3

REPORT INFORMATION
  Report Type: Other
  Country: DE (occurrence: DE)
  Receive Date: 20210618
  Receipt Date: 20210709
  Transmission Date: 20211014
  Serious: No
  Sender: FDA-Public Use
  Company Number: DE-ROCHE-2847308

PATIENT
  Age: 11 Year
  Sex: Female
  Weight: 31 kg

DRUGS (2)
  1. SPINRAZA [Concomitant]
     Active Substance: NUSINERSEN
     Indication: SPINAL MUSCULAR ATROPHY
  2. RISDIPLAM. [Suspect]
     Active Substance: RISDIPLAM
     Indication: SPINAL MUSCULAR ATROPHY
     Dosage: VIA PERCUTANEOUS ENDOSCOPIC GASTROSTOMY
     Route: 065
     Dates: start: 20210205

REACTIONS (2)
  - Stoma site erythema [Recovered/Resolved]
  - Stoma site discharge [Recovered/Resolved]

NARRATIVE: CASE EVENT DATE: 20210331
